FAERS Safety Report 6522273-1 (Version None)
Quarter: 2009Q4

REPORT INFORMATION
  Report Type: 
  Country: None (occurrence: None)
  Receive Date: 20091229
  Receipt Date: 20091229
  Transmission Date: 20100525
  Serious: Yes (Life-Threatening, Hospitalization)
  Sender: FDA-Public Use
  Company Number: None

PATIENT
  Age: 65 Year
  Sex: Male
  Weight: 90.7 kg

DRUGS (11)
  1. GENTAMICIN [Suspect]
     Indication: BACTERAEMIA
     Dosage: 90MG Q 8H IV
     Route: 042
     Dates: start: 20091008, end: 20091020
  2. DAPTOMYCIN [Concomitant]
  3. RIFAMPIN [Concomitant]
  4. LISINOPRIL [Concomitant]
  5. METOPROLOL TARTRATE [Concomitant]
  6. HYDROMORPHONE [Concomitant]
  7. HEPARIN [Concomitant]
  8. METHYLPHENIDATE HCL [Concomitant]
  9. TRAZODONE HCL [Concomitant]
  10. MEGACE [Concomitant]
  11. DOXYCYCLINE [Concomitant]

REACTIONS (2)
  - BLOOD CREATININE INCREASED [None]
  - RENAL TUBULAR NECROSIS [None]
